FAERS Safety Report 9086859 (Version 1)
Quarter: 2013Q1

REPORT INFORMATION
  Report Type: Report from Study
  Country: US (occurrence: US)
  Receive Date: 20130131
  Receipt Date: 20130131
  Transmission Date: 20140127
  Serious: No
  Sender: FDA-Public Use
  Company Number: US-ABBOTT-12P-163-0996631-00

PATIENT
  Sex: Female
  Weight: 73.55 kg

DRUGS (10)
  1. HUMIRA [Suspect]
     Route: 058
  2. REMICADE [Concomitant]
     Indication: PSORIATIC ARTHROPATHY
  3. METHOTREXATE [Concomitant]
     Indication: PSORIATIC ARTHROPATHY
  4. TYLENOL [Concomitant]
     Indication: PAIN
  5. RANITIDINE [Concomitant]
     Indication: GASTROOESOPHAGEAL REFLUX DISEASE
  6. VITAMIN D [Concomitant]
     Indication: MINERAL SUPPLEMENTATION
  7. FOLIC ACID [Concomitant]
     Indication: MINERAL SUPPLEMENTATION
  8. MULTIVITAMIN [Concomitant]
     Indication: VITAMIN SUPPLEMENTATION
  9. CITRUCEL [Concomitant]
     Indication: MINERAL SUPPLEMENTATION
  10. RECLAST [Concomitant]
     Indication: OSTEOPOROSIS

REACTIONS (1)
  - Pain [Not Recovered/Not Resolved]
